FAERS Safety Report 12643142 (Version 1)
Quarter: 2016Q3

REPORT INFORMATION
  Report Type: Report from Study
  Country: US (occurrence: US)
  Receive Date: 20160811
  Receipt Date: 20160811
  Transmission Date: 20161109
  Serious: Yes (Death, Other)
  Sender: FDA-Public Use
  Company Number: US-ROCHE-772084

PATIENT
  Age: 13 Year
  Sex: Male
  Weight: 50.3 kg

DRUGS (5)
  1. MORPHINE [Concomitant]
     Active Substance: MORPHINE
  2. TEMODAR [Concomitant]
     Active Substance: TEMOZOLOMIDE
  3. ATIVAN [Concomitant]
     Active Substance: LORAZEPAM
     Route: 042
  4. ROBINUL [Concomitant]
     Active Substance: GLYCOPYRROLATE
     Route: 042
  5. VISMODEGIB [Suspect]
     Active Substance: VISMODEGIB
     Indication: MEDULLOBLASTOMA
     Dosage: 170 MG/M2, QD
     Route: 048
     Dates: start: 20091026, end: 20091030

REACTIONS (4)
  - Death [Fatal]
  - Gamma-glutamyltransferase increased [Unknown]
  - Lymphocyte count decreased [Unknown]
  - Hyponatraemia [Unknown]

NARRATIVE: CASE EVENT DATE: 20091217
